FAERS Safety Report 18251445 (Version 1)
Quarter: 2020Q3

REPORT INFORMATION
  Report Type: Spontaneous
  Country: US (occurrence: US)
  Receive Date: 20200910
  Receipt Date: 20200910
  Transmission Date: 20201103
  Serious: No
  Sender: FDA-Public Use
  Company Number: US-BEH-2020122016

PATIENT
  Sex: Male

DRUGS (3)
  1. TOBRAMYCIN. [Concomitant]
     Active Substance: TOBRAMYCIN
  2. CELEBREX [Concomitant]
     Active Substance: CELECOXIB
  3. HIZENTRA [Suspect]
     Active Substance: HUMAN IMMUNOGLOBULIN G
     Indication: HYPOGAMMAGLOBULINAEMIA
     Dosage: 18 GRAM, QOW
     Route: 058

REACTIONS (3)
  - Infusion site swelling [Recovered/Resolved]
  - Incorrect drug administration rate [Recovered/Resolved]
  - Memory impairment [Recovered/Resolved]
